FAERS Safety Report 17665780 (Version 1)
Quarter: 2020Q2

REPORT INFORMATION
  Report Type: Spontaneous
  Country: US (occurrence: US)
  Receive Date: 20200414
  Receipt Date: 20200414
  Transmission Date: 20200713
  Serious: No
  Sender: FDA-Public Use
  Company Number: US-ACCORD-170117

PATIENT
  Age: 44 Year
  Sex: Female
  Weight: 95.45 kg

DRUGS (2)
  1. INVANZ [Concomitant]
     Active Substance: ERTAPENEM SODIUM
     Indication: OSTEOMYELITIS
     Dosage: 1 GM QD
     Route: 042
     Dates: start: 20191220, end: 20200127
  2. DAPTOMYCIN ACCORD [Suspect]
     Active Substance: DAPTOMYCIN
     Indication: INFECTION
     Dosage: 500 MG QD
     Route: 042
     Dates: start: 20191220, end: 20200127

REACTIONS (4)
  - Feeling cold [Recovered/Resolved]
  - Chills [Recovered/Resolved]
  - Tremor [Recovered/Resolved]
  - Influenza [Recovered/Resolved]

NARRATIVE: CASE EVENT DATE: 20200109
